FAERS Safety Report 5256242-9 (Version None)
Quarter: 2007Q1

REPORT INFORMATION
  Report Type: 
  Country: None (occurrence: None)
  Receive Date: 20070302
  Receipt Date: 20070302
  Transmission Date: 20070707
  Serious: Yes (Life-Threatening)
  Sender: FDA-Public Use
  Company Number: None

PATIENT
  Sex: Male

DRUGS (2)
  1. ERBITUX [Suspect]
     Indication: COLON CANCER
     Dosage: IV
     Route: 042
     Dates: start: 20060725, end: 20060725
  2. ERBITUX [Suspect]
     Indication: METASTASES TO LIVER
     Dosage: IV
     Route: 042
     Dates: start: 20060725, end: 20060725

REACTIONS (5)
  - COUGH [None]
  - DYSPNOEA [None]
  - INFUSION RELATED REACTION [None]
  - PRURITUS [None]
  - URTICARIA [None]
